FAERS Safety Report 8769769 (Version 2)
Quarter: 2012Q4

REPORT INFORMATION
  Report Type: 
  Country: US (occurrence: US)
  Receive Date: 20120905
  Receipt Date: 20121004
  Transmission Date: 20130627
  Serious: No
  Sender: FDA-Public Use
  Company Number: US-009507513-1209USA000363

PATIENT
  Age: 79 Year
  Sex: Female

DRUGS (7)
  1. AZASITE [Suspect]
     Indication: EYE DISCHARGE
     Dosage: One drop in each eye twice a day for one week, then one drop in each eye once a day
     Route: 047
  2. CENTRUM (MINERALS (UNSPECIFIED) (+) VITAMINS (UNSPECIFIED)) [Concomitant]
  3. ZOLPIDEM TARTRATE [Concomitant]
  4. PRAVASTATIN SODIUM [Concomitant]
  5. XANTHOPHYLL [Concomitant]
  6. BAYER ASPIRIN [Concomitant]
  7. CALCIUM (UNSPECIFIED) [Concomitant]

REACTIONS (2)
  - Eye irritation [Recovered/Resolved]
  - Pain [Recovered/Resolved]
